FAERS Safety Report 5038456-6 (Version None)
Quarter: 2006Q2

REPORT INFORMATION
  Report Type: 
  Country: None (occurrence: None)
  Receive Date: 20060628
  Receipt Date: 20060628
  Transmission Date: 20061013
  Serious: Yes (Life-Threatening, Hospitalization, Other)
  Sender: FDA-Public Use
  Company Number: None

PATIENT
  Age: 60 Year
  Sex: Female
  Weight: 113.3993 kg

DRUGS (1)
  1. RAPTIVA [Suspect]
     Indication: PSORIASIS
     Dosage: INITIAL INJECTION ONCE ONLY
     Dates: start: 20060524, end: 20060524

REACTIONS (28)
  - ABDOMINAL PAIN [None]
  - ARTHRALGIA [None]
  - BLOOD PRESSURE ORTHOSTATIC ABNORMAL [None]
  - CONDITION AGGRAVATED [None]
  - DEPRESSION [None]
  - DIABETES MELLITUS INADEQUATE CONTROL [None]
  - DIARRHOEA [None]
  - DIFFICULTY IN WALKING [None]
  - FEELING ABNORMAL [None]
  - FEELING COLD [None]
  - GASTROINTESTINAL HAEMORRHAGE [None]
  - HEADACHE [None]
  - INFLAMMATION [None]
  - JOINT EFFUSION [None]
  - JOINT SWELLING [None]
  - MENISCUS LESION [None]
  - NAUSEA [None]
  - OPEN WOUND [None]
  - PHOTOPSIA [None]
  - PRURITUS [None]
  - PSORIASIS [None]
  - SKIN EXFOLIATION [None]
  - STRESS [None]
  - SYNOVIAL FLUID WHITE BLOOD CELLS POSITIVE [None]
  - TOOTHACHE [None]
  - VISUAL DISTURBANCE [None]
  - VITREOUS FLOATERS [None]
  - WOUND SECRETION [None]
